FAERS Safety Report 7352294-0 (Version None)
Quarter: 2011Q1

REPORT INFORMATION
  Report Type: 
  Country: None (occurrence: None)
  Receive Date: 20110315
  Receipt Date: 20100712
  Transmission Date: 20110831
  Serious: Yes (Hospitalization, Other)
  Sender: FDA-Public Use
  Company Number: US-BAYER-201014182NA

PATIENT
  Sex: Female
  Weight: 59 kg

DRUGS (4)
  1. ANAPROX [Concomitant]
  2. LEVOTHYROXINE [Concomitant]
     Indication: HYPERTHYROIDISM
     Dosage: 0.05 UNK, UNK
     Dates: start: 20071101, end: 20090801
  3. IBUPROFEN [Concomitant]
  4. YAZ [Suspect]
     Indication: ORAL CONTRACEPTION
     Dosage: AS USED DOSE: UNK
     Route: 048
     Dates: start: 20061001, end: 20080415

REACTIONS (8)
  - PULMONARY EMBOLISM [None]
  - PAIN [None]
  - DYSPNOEA [None]
  - DEEP VEIN THROMBOSIS [None]
  - GAIT DISTURBANCE [None]
  - DIZZINESS [None]
  - PALPITATIONS [None]
  - CHEST DISCOMFORT [None]
